FAERS Safety Report 22122190 (Version 1)
Quarter: 2023Q1

REPORT INFORMATION
  Report Type: Spontaneous
  Country: US (occurrence: US)
  Receive Date: 20230321
  Receipt Date: 20230321
  Transmission Date: 20230418
  Serious: No
  Sender: FDA-Public Use
  Company Number: US-MYLANLABS-2023M1025905

PATIENT
  Sex: Male

DRUGS (1)
  1. SEMGLEE (INSULIN GLARGINE-YFGN) [Suspect]
     Active Substance: INSULIN GLARGINE-YFGN
     Indication: Diabetes mellitus
     Dosage: 45 INTERNATIONAL UNIT, BID (IN THE MORNING AND AT NIGHT)
     Route: 065

REACTIONS (3)
  - Injection site hypertrophy [Unknown]
  - Device delivery system issue [Unknown]
  - Product storage error [Unknown]
